FAERS Safety Report 8286562-5 (Version None)
Quarter: 2012Q2

REPORT INFORMATION
  Report Type: 
  Country: None (occurrence: None)
  Receive Date: 20120416
  Receipt Date: 20120409
  Transmission Date: 20120825
  Serious: Yes (Hospitalization)
  Sender: FDA-Public Use
  Company Number: US-BAYER-2011-083741

PATIENT
  Age: 27 Year
  Sex: Female
  Weight: 88 kg

DRUGS (14)
  1. YASMIN [Suspect]
     Dosage: UNK
     Dates: start: 20011201, end: 20080701
  2. PREVACID [Concomitant]
  3. LIDOCAINE HCL VISCOUS [Concomitant]
  4. ZYRTEC [Concomitant]
  5. IBUPROFEN [Concomitant]
  6. NUVARING [Concomitant]
     Dosage: UNK UNK, PRN
  7. CALCIUM CARBONATE [Concomitant]
     Dosage: UNK UNK, PRN
  8. ZITHROMAX [Concomitant]
  9. RANITIDINE [Concomitant]
  10. ALLEGRA [Concomitant]
  11. HYDROCORTISONE [Concomitant]
  12. EFFEXOR [Concomitant]
  13. MAGNESIUM HYDROXIDE TAB [Concomitant]
  14. LEXAPRO [Concomitant]

REACTIONS (8)
  - ANHEDONIA [None]
  - CHOLECYSTITIS ACUTE [None]
  - BILIARY COLIC [None]
  - HYDROCHOLECYSTIS [None]
  - PAIN [None]
  - GALLBLADDER OBSTRUCTION [None]
  - EMOTIONAL DISTRESS [None]
  - ANXIETY [None]
